FAERS Safety Report 9780523 (Version 1)
Quarter: 2013Q4

REPORT INFORMATION
  Report Type: Spontaneous
  Country: US (occurrence: US)
  Receive Date: 20131224
  Receipt Date: 20131224
  Transmission Date: 20140711
  Serious: Yes (Other)
  Sender: FDA-Public Use
  Company Number: US-JNJFOC-20131213125

PATIENT
  Sex: Female

DRUGS (9)
  1. KETOCONAZOLE [Suspect]
     Route: 061
  2. KETOCONAZOLE [Suspect]
     Indication: ALOPECIA
     Route: 061
     Dates: start: 201206
  3. LAMICTAL [Suspect]
     Indication: AFFECT LABILITY
     Route: 065
  4. AMBIEN [Concomitant]
     Indication: INSOMNIA
     Route: 048
     Dates: start: 2011
  5. XANAX [Concomitant]
     Indication: SLEEP DISORDER
     Dosage: 1 MG IN DAY AND 1.75 MG AT NIGHT
     Route: 048
  6. XANAX [Concomitant]
     Indication: ANXIETY
     Dosage: 1 MG IN DAY AND 1.75 MG AT NIGHT
     Route: 048
  7. TRAZODONE [Concomitant]
     Indication: SLEEP DISORDER
     Dosage: 250 MG IN DAY AND 350 MG IN NIGHT
     Route: 048
  8. LEVOTHYROXINE [Concomitant]
     Indication: HYPOTHYROIDISM
     Dosage: 250 MG IN DAY AND 350 MG IN NIGHT
     Route: 048
  9. BOTOX [Concomitant]
     Indication: MIGRAINE
     Route: 065

REACTIONS (3)
  - Weight increased [Not Recovered/Not Resolved]
  - Alopecia [Recovered/Resolved]
  - Off label use [Unknown]
